FAERS Safety Report 7873511-4 (Version None)
Quarter: 2011Q4

REPORT INFORMATION
  Report Type: 
  Country: None (occurrence: None)
  Receive Date: 20111030
  Receipt Date: 20110505
  Transmission Date: 20120403
  Serious: No
  Sender: FDA-Public Use
  Company Number: US-AMGEN-USASP2011023425

PATIENT
  Age: 80 Year
  Sex: Male

DRUGS (2)
  1. ENBREL [Suspect]
     Indication: RHEUMATOID ARTHRITIS
     Dosage: 50 MG, QWK
     Dates: start: 20101119
  2. PREDNISONE [Concomitant]
     Dosage: UNK

REACTIONS (6)
  - SNEEZING [None]
  - HEADACHE [None]
  - RHEUMATOID ARTHRITIS [None]
  - BRONCHITIS CHRONIC [None]
  - THERAPEUTIC RESPONSE DECREASED [None]
  - RHINORRHOEA [None]
